FAERS Safety Report 10098057 (Version 1)
Quarter: 2014Q2

REPORT INFORMATION
  Report Type: Spontaneous
  Country: GB (occurrence: GB)
  Receive Date: 20140423
  Receipt Date: 20140423
  Transmission Date: 20141212
  Serious: Yes (Hospitalization, Other)
  Sender: FDA-Public Use
  Company Number: GB-RANBAXY-2014RR-80469

PATIENT
  Age: 9 Year
  Sex: Male
  Weight: 21 kg

DRUGS (4)
  1. AMOXICILLIN [Suspect]
     Indication: LOWER RESPIRATORY TRACT INFECTION
     Dosage: UNK
     Route: 048
     Dates: start: 20140308, end: 20140314
  2. AUGMENTIN [Suspect]
     Indication: LOWER RESPIRATORY TRACT INFECTION
     Dosage: UNK
     Route: 048
     Dates: start: 20140316, end: 20140318
  3. CALPOL [Concomitant]
     Indication: PRODUCT USED FOR UNKNOWN INDICATION
     Route: 048
  4. BOOTS ALLERGY RELIEF ANTIHISTAMINE [Concomitant]
     Indication: HOUSE DUST ALLERGY
     Dosage: STARTED 2 WEEKS AGO
     Route: 048

REACTIONS (3)
  - Rash [Recovering/Resolving]
  - Lip swelling [Recovering/Resolving]
  - Stevens-Johnson syndrome [Recovering/Resolving]
